FAERS Safety Report 6110016-5 (Version None)
Quarter: 2009Q1

REPORT INFORMATION
  Report Type: 
  Country: None (occurrence: None)
  Receive Date: 20090310
  Receipt Date: 20081120
  Transmission Date: 20090719
  Serious: No
  Sender: FDA-Public Use
  Company Number: A0757971A

PATIENT

DRUGS (2)
  1. COMMIT [Suspect]
     Indication: SMOKING CESSATION THERAPY
     Route: 002
  2. NICOTINE [Suspect]
     Indication: SMOKING CESSATION THERAPY
     Route: 062

REACTIONS (4)
  - AGITATION [None]
  - DEPRESSION [None]
  - INTENTIONAL DRUG MISUSE [None]
  - OBSESSIVE THOUGHTS [None]
